FAERS Safety Report 5840208-1 (Version None)
Quarter: 2008Q3

REPORT INFORMATION
  Report Type: 
  Country: None (occurrence: None)
  Receive Date: 20080811
  Receipt Date: 20080729
  Transmission Date: 20090109
  Serious: Yes (Hospitalization)
  Sender: FDA-Public Use
  Company Number: FR-ELI_LILLY_AND_COMPANY-FR200807005796

PATIENT
  Sex: Male

DRUGS (9)
  1. GEMZAR [Suspect]
     Indication: PANCREATIC CARCINOMA
     Dosage: UNK, UNKNOWN
     Route: 042
     Dates: start: 20080311, end: 20080603
  2. HUMALOG [Suspect]
     Indication: DIABETES MELLITUS
     Dosage: UNK, UNKNOWN
     Route: 058
  3. TENORDATE [Concomitant]
     Indication: HYPERTENSION
     Dosage: 1 D/F, DAILY (1/D)
     Route: 048
  4. ZYLORIC [Concomitant]
     Indication: HYPERURICAEMIA
     Dosage: 1 D/F, DAILY (1/D)
     Route: 048
  5. PRAVASTATIN [Concomitant]
     Indication: DYSLIPIDAEMIA
     Dosage: 1 D/F, DAILY (1/D)
     Route: 048
  6. NEXIUM [Concomitant]
     Dosage: 1 D/F, DAILY (1/D)
     Route: 048
     Dates: start: 20070802
  7. FORLAX [Concomitant]
     Dosage: UNK, UNKNOWN
     Route: 048
     Dates: start: 20070803
  8. NOVOLOG [Concomitant]
     Indication: DIABETES MELLITUS
     Dosage: UNK, UNKNOWN
     Route: 058
  9. CORTICOSTEROIDS [Concomitant]
     Dosage: UNK, UNKNOWN
     Route: 065

REACTIONS (4)
  - EPIDERMAL NECROSIS [None]
  - PAIN [None]
  - PARANEOPLASTIC SYNDROME [None]
  - VASCULITIS [None]
